FAERS Safety Report 8180066-6 (Version None)
Quarter: 2012Q1

REPORT INFORMATION
  Report Type: 
  Country: None (occurrence: None)
  Receive Date: 20120302
  Receipt Date: 20120302
  Transmission Date: 20120608
  Serious: No
  Sender: FDA-Public Use
  Company Number: None

PATIENT
  Age: 45 Year
  Sex: Female
  Weight: 63.049 kg

DRUGS (1)
  1. CELEBREX [Suspect]
     Indication: ADENOMATOUS POLYPOSIS COLI
     Dosage: 200.0 MG
     Route: 048
     Dates: start: 20110125, end: 20110601

REACTIONS (1)
  - BREAST TENDERNESS [None]
